FAERS Safety Report 7103852-X (Version None)
Quarter: 2010Q4

REPORT INFORMATION
  Report Type: 
  Country: None (occurrence: None)
  Receive Date: 20101115
  Receipt Date: 20101111
  Transmission Date: 20110411
  Serious: Yes (Death, Other)
  Sender: FDA-Public Use
  Company Number: US-PFIZER INC-2010146342

PATIENT
  Sex: Female
  Weight: 95.238 kg

DRUGS (10)
  1. LYRICA [Suspect]
     Dosage: 50 MG, 3X/DAY
     Route: 048
  2. SITAGLIPTIN [Concomitant]
     Dosage: UNK
  3. GLUCOTROL [Concomitant]
     Dosage: UNK
  4. METFORMIN [Concomitant]
     Dosage: UNK
  5. LISINOPRIL [Concomitant]
     Dosage: UNK
  6. VYTORIN [Concomitant]
     Dosage: UNK
  7. TOPROL-XL [Concomitant]
     Dosage: UNK
  8. AMITRIPTYLINE [Concomitant]
     Dosage: UNK
  9. NEXIUM [Concomitant]
     Dosage: UNK
  10. INSULIN [Concomitant]
     Dosage: UNK

REACTIONS (2)
  - BLOOD GLUCOSE INCREASED [None]
  - DEATH [None]
